FAERS Safety Report 6234298-4 (Version None)
Quarter: 2009Q2

REPORT INFORMATION
  Report Type: 
  Country: None (occurrence: None)
  Receive Date: 20090618
  Receipt Date: 20090608
  Transmission Date: 20091009
  Serious: Yes (Hospitalization, Other)
  Sender: FDA-Public Use
  Company Number: US-AMGEN-QUU350456

PATIENT
  Sex: Male

DRUGS (9)
  1. NEULASTA [Suspect]
     Indication: CHEMOTHERAPY
     Route: 065
     Dates: start: 20090603
  2. RITUXIMAB [Concomitant]
     Dates: start: 20090602
  3. CYCLOPHOSPHAMIDE [Concomitant]
     Dates: start: 20090602
  4. DOXORUBICIN HYDROCHLORIDE [Concomitant]
     Dates: start: 20090602
  5. VINCRISTINE [Concomitant]
     Dates: start: 20090602
  6. PREDNISOLONE [Concomitant]
     Dates: start: 20090602
  7. ALLOPURINOL [Concomitant]
  8. ACYCLOVIR [Concomitant]
  9. BACTRIM [Concomitant]

REACTIONS (6)
  - HYPERSENSITIVITY [None]
  - INJECTION SITE REACTION [None]
  - PRURITUS [None]
  - RASH GENERALISED [None]
  - SWELLING [None]
  - URTICARIA [None]
